FAERS Safety Report 8300515-X (Version None)
Quarter: 2012Q2

REPORT INFORMATION
  Report Type: 
  Country: None (occurrence: None)
  Receive Date: 20120420
  Receipt Date: 20120412
  Transmission Date: 20120825
  Serious: Yes (Hospitalization, Other)
  Sender: FDA-Public Use
  Company Number: US-BIOGENIDEC-2011BI044035

PATIENT
  Age: 70 Year
  Sex: Female

DRUGS (11)
  1. BACLOFEN [Concomitant]
     Route: 048
  2. SIMVASTATIN [Concomitant]
     Route: 048
  3. TYSABRI [Suspect]
     Indication: MULTIPLE SCLEROSIS
     Route: 042
     Dates: start: 20070914
  4. MULTI-VITAMIN [Concomitant]
     Route: 048
  5. VENLAFAXINE [Concomitant]
     Route: 048
  6. CLOPIDOGREL [Concomitant]
     Route: 048
  7. ZOLPIDEM [Concomitant]
     Route: 048
  8. VENLAFAXINE [Concomitant]
     Route: 048
  9. METOPROLOL TARTRATE [Concomitant]
     Route: 048
  10. PANTOPRAZOLE [Concomitant]
     Route: 048
  11. TOLTERODINE TARTRATE [Concomitant]
     Route: 048

REACTIONS (6)
  - URINARY TRACT INFECTION [None]
  - SEPSIS [None]
  - DEVICE RELATED INFECTION [None]
  - URTICARIA [None]
  - DELIRIUM [None]
  - FEELING ABNORMAL [None]
